FAERS Safety Report 19665758 (Version 2)
Quarter: 2024Q3

REPORT INFORMATION
  Report Type: Spontaneous
  Country: US (occurrence: US)
  Receive Date: 20210806
  Receipt Date: 20240802
  Transmission Date: 20241016
  Serious: Yes (Other)
  Sender: ACCORD
  Company Number: US-ACCORD-220450

PATIENT
  Age: 37 Year
  Sex: Female

DRUGS (7)
  1. DOCETAXEL [Suspect]
     Active Substance: DOCETAXEL\DOCETAXEL ANHYDROUS
     Indication: Chemotherapy
     Dosage: NO OF CYCLES: 6?FREQUENCY: 3 WEEKS?4 WEEKS BETWEEN CYCLE 5 AND CYCLE 6?C1-C2: 176MG?C3-C6: 172MG
     Route: 042
     Dates: start: 20190206, end: 20190605
  2. HERCEPTIN [Suspect]
     Active Substance: TRASTUZUMAB
     Indication: Breast cancer
     Dosage: 6 CYCLE
     Dates: start: 20190206, end: 20190605
  3. TAMOXIFEN [Suspect]
     Active Substance: TAMOXIFEN
     Indication: Breast cancer
     Dosage: 6 CYCLE
     Dates: start: 20190829
  4. LUPRON [Suspect]
     Active Substance: LEUPROLIDE ACETATE
     Indication: Breast cancer
     Dosage: 6 CYCLE
     Dates: start: 201909
  5. PARAPLATIN [Suspect]
     Active Substance: CARBOPLATIN
     Indication: Breast cancer
     Dosage: 6 CYCLE
     Route: 042
     Dates: start: 20190206, end: 20190605
  6. PERJETA [Suspect]
     Active Substance: PERTUZUMAB
     Indication: Breast cancer
     Dosage: 6 CYCLE
     Dates: start: 20190206, end: 20190505
  7. NEULASTA [Suspect]
     Active Substance: PEGFILGRASTIM
     Indication: Breast cancer
     Dosage: ONCE
     Route: 058
     Dates: start: 20190206

REACTIONS (8)
  - Oedema peripheral [Unknown]
  - Skin discolouration [Unknown]
  - Diarrhoea [Unknown]
  - Nausea [Unknown]
  - Hypokalaemia [Recovered/Resolved]
  - Dacryostenosis acquired [Not Recovered/Not Resolved]
  - Dry eye [Unknown]
  - Conjunctivitis [Unknown]

NARRATIVE: CASE EVENT DATE: 20200731
